FAERS Safety Report 9260370 (Version 3)
Quarter: 2013Q2

REPORT INFORMATION
  Report Type: Spontaneous
  Country: BR (occurrence: BR)
  Receive Date: 20130429
  Receipt Date: 20130528
  Transmission Date: 20140414
  Serious: Yes (Other)
  Sender: FDA-Public Use
  Company Number: PHHY2013BR041537

PATIENT
  Age: 85 Year
  Sex: Female

DRUGS (5)
  1. DIOVAN HCT [Suspect]
     Indication: HYPERTENSION
     Dosage: 1 DF QD (320 MG VALS  AND 12.5 MG HCTZ, ONCE IN THE MORNING)
     Route: 048
  2. PERIDAL//DOMPERIDONE [Concomitant]
     Dosage: 1 DF, A DAY (DOMP 10 MG)
     Route: 048
  3. CALTREN [Concomitant]
     Dosage: 1 DF, A DAY (NITR 10 MG)
     Route: 048
  4. OMEPRAZOLE [Concomitant]
     Dosage: 1 DF, A DAY
     Route: 048
  5. ASSERT [Concomitant]
     Dosage: 1 DF, A DAY
     Route: 048

REACTIONS (2)
  - Dysphagia [Not Recovered/Not Resolved]
  - Neurodegenerative disorder [Not Recovered/Not Resolved]
